FAERS Safety Report 4916241-0 (Version None)
Quarter: 2006Q1

REPORT INFORMATION
  Report Type: 
  Country: None (occurrence: None)
  Receive Date: 20060217
  Receipt Date: 20050421
  Transmission Date: 20060701
  Serious: Yes (Hospitalization)
  Sender: FDA-Public Use
  Company Number: US-MERCK-0504USA04294

PATIENT
  Age: 59 Year
  Sex: Male
  Weight: 82 kg

DRUGS (6)
  1. VIOXX [Suspect]
     Indication: NECK PAIN
     Route: 048
     Dates: start: 20000101, end: 20030101
  2. VIOXX [Suspect]
     Indication: SHOULDER PAIN
     Route: 048
     Dates: start: 20000101, end: 20030101
  3. PROZAC [Concomitant]
     Indication: ANXIETY
     Route: 065
  4. OXYCODONE [Concomitant]
     Route: 065
     Dates: start: 20000101
  5. HYDROCODONE BITARTRATE [Concomitant]
     Route: 065
     Dates: start: 20000101
  6. NAPROXEN [Concomitant]
     Route: 065
     Dates: start: 20020101

REACTIONS (6)
  - ACUTE MYOCARDIAL INFARCTION [None]
  - BLOOD CHOLESTEROL INCREASED [None]
  - CARDIAC ARREST [None]
  - CARDIAC FIBRILLATION [None]
  - CORONARY ARTERY STENOSIS [None]
  - INJURY [None]
